FAERS Safety Report 7502771-4 (Version None)
Quarter: 2011Q2

REPORT INFORMATION
  Report Type: 
  Country: None (occurrence: None)
  Receive Date: 20110525
  Receipt Date: 20100809
  Transmission Date: 20111010
  Serious: No
  Sender: FDA-Public Use
  Company Number: US-NOVEN-ALL1-2010-04204

PATIENT

DRUGS (3)
  1. ORACEA [Concomitant]
     Dosage: 40 MG, 1X/DAY:QD
     Route: 048
     Dates: start: 20100101
  2. DAYTRANA [Suspect]
     Dosage: 20 MG, 1X/DAY:QD
     Route: 062
     Dates: start: 20100101
  3. TRAZODONE HCL [Concomitant]
     Dosage: 200 MG, 1X/DAY:QD
     Route: 048

REACTIONS (3)
  - PRODUCT QUALITY ISSUE [None]
  - NO ADVERSE EVENT [None]
  - WRONG TECHNIQUE IN DRUG USAGE PROCESS [None]
